FAERS Safety Report 8025039-9 (Version None)
Quarter: 2012Q1

REPORT INFORMATION
  Report Type: 
  Country: None (occurrence: None)
  Receive Date: 20120103
  Receipt Date: 20111122
  Transmission Date: 20120608
  Serious: Yes (Hospitalization)
  Sender: FDA-Public Use
  Company Number: 2011MA018144

PATIENT
  Age: 17 Year
  Sex: Female

DRUGS (2)
  1. FLUOXETINE [Concomitant]
  2. SERTRALINE HYDROCHLORIDE [Suspect]
     Indication: DEPRESSION
     Dosage: 25 MG;PO
     Route: 048
     Dates: start: 20111110, end: 20111122

REACTIONS (3)
  - AGITATION [None]
  - SUICIDAL BEHAVIOUR [None]
  - INTENTIONAL SELF-INJURY [None]
